FAERS Safety Report 12158862 (Version 1)
Quarter: 2016Q1

REPORT INFORMATION
  Report Type: Spontaneous
  Country: US (occurrence: US)
  Receive Date: 20160308
  Receipt Date: 20160308
  Transmission Date: 20160526
  Serious: No
  Sender: FDA-Public Use
  Company Number: US-JNJFOC-20160212958

PATIENT
  Age: 81 Year
  Sex: Female
  Weight: 86.18 kg

DRUGS (2)
  1. TYLENOL EXTRA STRENGTH [Suspect]
     Active Substance: ACETAMINOPHEN
     Indication: FIBROMYALGIA
     Dosage: AS NEEDED-AT NIGHT FOR PAIN RELATED TO A KNEE REPLACEMENT AND FIBROMYALGIA
     Route: 048
  2. TYLENOL EXTRA STRENGTH [Suspect]
     Active Substance: ACETAMINOPHEN
     Indication: ARTHRALGIA
     Dosage: AS NEEDED-AT NIGHT FOR PAIN RELATED TO A KNEE REPLACEMENT AND FIBROMYALGIA
     Route: 048

REACTIONS (1)
  - Hypersomnia [Recovered/Resolved]
